FAERS Safety Report 14049770 (Version 1)
Quarter: 2017Q4

REPORT INFORMATION
  Report Type: Spontaneous
  Country: FR (occurrence: FR)
  Receive Date: 20171005
  Receipt Date: 20171005
  Transmission Date: 20180321
  Serious: Yes (Other)
  Sender: FDA-Public Use
  Company Number: FR-PFIZER INC-2017422632

PATIENT
  Age: 72 Year
  Sex: Male

DRUGS (6)
  1. SOLU-MEDROL [Suspect]
     Active Substance: METHYLPREDNISOLONE SODIUM SUCCINATE
     Dosage: 60 MG, CYCLIC ON DAY1
     Route: 042
     Dates: start: 20170914
  2. GEMCITABIN ARROW [Suspect]
     Active Substance: GEMCITABINE HYDROCHLORIDE
     Indication: CHOLANGIOCARCINOMA
     Dosage: 2000 MG, CYCLIC ON DAY1
     Route: 042
     Dates: start: 20170914
  3. SETOFILM [Concomitant]
     Active Substance: ONDANSETRON
     Dosage: 8 MG, CYCLIC ON D2
     Route: 048
     Dates: start: 20170915, end: 20170915
  4. OXALIPLATIN HOSPIRA [Suspect]
     Active Substance: OXALIPLATIN
     Indication: CHOLANGIOCARCINOMA
     Dosage: 100 MG, CYCLIC ON DAY1
     Route: 042
     Dates: start: 20170914
  5. SOLU-MEDROL [Suspect]
     Active Substance: METHYLPREDNISOLONE SODIUM SUCCINATE
     Dosage: 60 MG, CYCLIC ON DAY1
     Route: 042
     Dates: start: 20170915, end: 20170915
  6. OXALIPLATIN HOSPIRA [Suspect]
     Active Substance: OXALIPLATIN
     Dosage: 100 MG, CYCLIC ON DAY 2
     Route: 042
     Dates: start: 20170915, end: 20170915

REACTIONS (4)
  - Chills [Recovered/Resolved]
  - Leukocytosis [Unknown]
  - Hot flush [Recovered/Resolved]
  - Pyrexia [Recovered/Resolved]

NARRATIVE: CASE EVENT DATE: 20170914
